FAERS Safety Report 21385653 (Version 1)
Quarter: 2022Q3

REPORT INFORMATION
  Report Type: Spontaneous
  Country: ES (occurrence: ES)
  Receive Date: 20220928
  Receipt Date: 20220928
  Transmission Date: 20221027
  Serious: Yes (Hospitalization)
  Sender: FDA-Public Use
  Company Number: None

PATIENT
  Age: 83 Year
  Sex: Male

DRUGS (6)
  1. FUROSEMIDE [Suspect]
     Active Substance: FUROSEMIDE
     Indication: Cardiac failure
     Dosage: 120 MILLIGRAM, QD
     Route: 065
     Dates: start: 201709, end: 20220725
  2. SPIRONOLACTONE [Suspect]
     Active Substance: SPIRONOLACTONE
     Indication: Cardiac failure
     Dosage: 25 MILLIGRAM, QD
     Route: 048
     Dates: start: 20220705, end: 20220725
  3. HYDROCHLOROTHIAZIDE [Suspect]
     Active Substance: HYDROCHLOROTHIAZIDE
     Indication: Hypertension
     Dosage: 50 MILLIGRAM, QD
     Route: 048
     Dates: start: 20220705, end: 20220725
  4. HYDRALAZINE [Concomitant]
     Active Substance: HYDRALAZINE HYDROCHLORIDE
     Indication: Hypertension
     Dosage: 37.5 MILLIGRAM, QD
     Route: 048
     Dates: start: 201907
  5. BISOPROLOL [Concomitant]
     Active Substance: BISOPROLOL
     Indication: Atrial fibrillation
     Dosage: 2.5 MILLIGRAM, QD
     Route: 048
     Dates: start: 201907
  6. DUTASTERIDE [Concomitant]
     Active Substance: DUTASTERIDE
     Indication: Benign prostatic hyperplasia
     Dosage: 1 DOSAGE FORM, QD
     Route: 048
     Dates: start: 20220705

REACTIONS (1)
  - Acute kidney injury [Recovered/Resolved]

NARRATIVE: CASE EVENT DATE: 20220725
